FAERS Safety Report 7050029-2 (Version None)
Quarter: 2010Q4

REPORT INFORMATION
  Report Type: 
  Country: None (occurrence: None)
  Receive Date: 20101012
  Receipt Date: 20100928
  Transmission Date: 20110411
  Serious: Yes (Other)
  Sender: FDA-Public Use
  Company Number: 018870

PATIENT
  Sex: Male

DRUGS (2)
  1. CIMZIA [Suspect]
     Indication: CROHN'S DISEASE
     Dosage: (400 MG 1X/2 WEEKS, 400 MG ONCE SUBCUTANEOUS)
     Route: 058
     Dates: start: 20100910, end: 20100910
  2. VITAMIN B-12 [Concomitant]

REACTIONS (5)
  - DRUG HYPERSENSITIVITY [None]
  - ERYTHEMA [None]
  - PRURITUS GENERALISED [None]
  - SWELLING FACE [None]
  - THROAT TIGHTNESS [None]
